FAERS Safety Report 12434200 (Version 2)
Quarter: 2016Q2

REPORT INFORMATION
  Report Type: Spontaneous
  Country: GB (occurrence: GB)
  Receive Date: 20160603
  Receipt Date: 20160617
  Transmission Date: 20160815
  Serious: Yes (Other)
  Sender: FDA-Public Use
  Company Number: GB-CELGENEUS-GBR-2016055715

PATIENT
  Age: 25 Year
  Sex: Female

DRUGS (2)
  1. THALIDOMIDE [Suspect]
     Active Substance: THALIDOMIDE
     Indication: OFF LABEL USE
     Dosage: UP TO 200MG
     Route: 048
     Dates: start: 2000, end: 201512
  2. THALIDOMIDE [Suspect]
     Active Substance: THALIDOMIDE
     Indication: LARYNGO-ONYCHO-CUTANEOUS SYNDROME

REACTIONS (3)
  - Ovarian failure [Not Recovered/Not Resolved]
  - Laryngo-onycho-cutaneous syndrome [Unknown]
  - Neuropathy peripheral [Recovered/Resolved with Sequelae]

NARRATIVE: CASE EVENT DATE: 201505
